FAERS Safety Report 25445305 (Version 1)
Quarter: 2025Q2

REPORT INFORMATION
  Report Type: Spontaneous
  Country: SK (occurrence: None)
  Receive Date: 20250616
  Receipt Date: 20250616
  Transmission Date: 20250716
  Serious: Yes (Life-Threatening, Hospitalization, Disabling, Other)
  Sender: FDA-CTU
  Company Number: None

PATIENT
  Age: 40 Year
  Sex: Male
  Weight: 73 kg

DRUGS (4)
  1. QUETIAPINE FUMARATE [Suspect]
     Active Substance: QUETIAPINE FUMARATE
     Indication: Musculoskeletal stiffness
     Dates: start: 20081205, end: 20151205
  2. VENLAFAXINE HYDROCHLORIDE [Suspect]
     Active Substance: VENLAFAXINE HYDROCHLORIDE
  3. DIAZEPAM [Suspect]
     Active Substance: DIAZEPAM
  4. ZYPREXA [Suspect]
     Active Substance: OLANZAPINE

REACTIONS (4)
  - General physical health deterioration [None]
  - Tooth loss [None]
  - Spinal disorder [None]
  - Seizure [None]

NARRATIVE: CASE EVENT DATE: 20151207
